FAERS Safety Report 24204178 (Version 1)
Quarter: 2024Q3

REPORT INFORMATION
  Report Type: Report from Study
  Country: NZ (occurrence: NZ)
  Receive Date: 20240813
  Receipt Date: 20240813
  Transmission Date: 20241017
  Serious: Yes (Death)
  Sender: ROCHE
  Company Number: NZ-ROCHE-10000050759

PATIENT

DRUGS (5)
  1. RITUXIMAB [Suspect]
     Active Substance: RITUXIMAB
     Indication: Immune-mediated myositis
     Route: 065
  2. METHOTREXATE [Suspect]
     Active Substance: METHOTREXATE
     Indication: Immune-mediated myositis
     Route: 065
  3. AZATHIOPRINE [Suspect]
     Active Substance: AZATHIOPRINE
     Indication: Immune-mediated myositis
     Route: 065
  4. MYCOPHENOLIC ACID [Suspect]
     Active Substance: MYCOPHENOLIC ACID
     Indication: Immune-mediated myositis
     Route: 065
  5. CYCLOSPORINE [Suspect]
     Active Substance: CYCLOSPORINE
     Indication: Immune-mediated myositis
     Route: 065

REACTIONS (12)
  - Diabetes mellitus [Unknown]
  - Blood glucose abnormal [Unknown]
  - Infection [Unknown]
  - Hepatitis [Unknown]
  - Osteopenia [Unknown]
  - Osteoporosis [Unknown]
  - Mental disorder [Unknown]
  - Cushing^s syndrome [Unknown]
  - Cataract [Unknown]
  - COVID-19 [Fatal]
  - Urinary tract infection [Fatal]
  - Pneumonia [Fatal]
